FAERS Safety Report 6812082-8 (Version None)
Quarter: 2010Q3

REPORT INFORMATION
  Report Type: 
  Country: None (occurrence: None)
  Receive Date: 20100701
  Receipt Date: 20100623
  Transmission Date: 20110219
  Serious: Yes (Hospitalization)
  Sender: FDA-Public Use
  Company Number: DE-ELI_LILLY_AND_COMPANY-DE201006005998

PATIENT
  Sex: Male

DRUGS (6)
  1. BYETTA [Suspect]
     Indication: DIABETES MELLITUS
     Dosage: UNK, UNKNOWN
     Route: 058
     Dates: start: 20070101
  2. PROTAPHANE [Concomitant]
  3. EYE DROPS [Concomitant]
  4. IBUPROFEN [Concomitant]
  5. ANTIHYPERTENSIVES [Concomitant]
  6. LYRICA [Concomitant]
     Dosage: 75 (UNITS UNSPECIFIED)

REACTIONS (4)
  - OFF LABEL USE [None]
  - RIB FRACTURE [None]
  - ROAD TRAFFIC ACCIDENT [None]
  - UPPER LIMB FRACTURE [None]
